FAERS Safety Report 8589791-6 (Version None)
Quarter: 2012Q3

REPORT INFORMATION
  Report Type: 
  Country: None (occurrence: None)
  Receive Date: 20120813
  Receipt Date: 20120801
  Transmission Date: 20120928
  Serious: Yes (Death)
  Sender: FDA-Public Use
  Company Number: DE-SANOFI-AVENTIS-2012SA046641

PATIENT
  Age: 75 Year
  Sex: Male
  Weight: 127 kg

DRUGS (4)
  1. CAPECITABINE [Suspect]
     Dosage: 825 MG/M BID D 1-33 WITHOUT WEEKEND + OPTIMAL DOSE
     Route: 048
     Dates: start: 20110310, end: 20110407
  2. ACETYLCYSTEINE [Concomitant]
     Indication: EMBOLISM
     Route: 048
     Dates: start: 20101001
  3. THERAPEUTIC RADIOPHARMACEUTICALS [Suspect]
     Dosage: 45 GY TOTAL DOSE, 1.8 GY ON D 1-33 W/O WEEKENDS + OPTIONAL BOOST
     Route: 065
     Dates: start: 20110310, end: 20110420
  4. OXALIPLATIN [Suspect]
     Dosage: 50 MG/M2 ON D 1, 8 , 15, 22 AND 29
     Route: 042
     Dates: start: 20110310, end: 20110331

REACTIONS (4)
  - RESPIRATORY FAILURE [None]
  - PNEUMONIA ASPIRATION [None]
  - ASPHYXIA [None]
  - ACUTE RIGHT VENTRICULAR FAILURE [None]
